FAERS Safety Report 5743106-7 (Version None)
Quarter: 2008Q2

REPORT INFORMATION
  Report Type: 
  Country: None (occurrence: None)
  Receive Date: 20080519
  Receipt Date: 20080509
  Transmission Date: 20081010
  Serious: Yes (Death, Hospitalization)
  Sender: FDA-Public Use
  Company Number: JP-AMGEN-US277309

PATIENT
  Sex: Female

DRUGS (5)
  1. ENBREL [Suspect]
     Indication: RHEUMATOID ARTHRITIS
     Route: 058
     Dates: start: 20060821
  2. RINDERON [Suspect]
     Route: 048
  3. RINDERON [Suspect]
     Dosage: 0.5 MG TABS-3 TABLETS IN 3 DIVIDED DOSES
     Dates: start: 20020301
  4. RHEUMATREX [Suspect]
     Dosage: 2 MG
     Route: 048
  5. RHEUMATREX [Suspect]
     Dosage: 8 MG
     Dates: start: 20020301

REACTIONS (4)
  - CHOLECYSTITIS [None]
  - DIARRHOEA [None]
  - SEPSIS [None]
  - SHOCK [None]
